FAERS Safety Report 9269181 (Version 1)
Quarter: 2013Q2

REPORT INFORMATION
  Report Type: Spontaneous
  Country: FR (occurrence: FR)
  Receive Date: 20130503
  Receipt Date: 20130503
  Transmission Date: 20140414
  Serious: Yes (Hospitalization, Other)
  Sender: FDA-Public Use
  Company Number: 2013SP003777

PATIENT
  Age: 39 Year
  Sex: Female

DRUGS (2)
  1. VANCOMYCIN [Suspect]
     Indication: PRODUCT USED FOR UNKNOWN INDICATION
  2. PIP/TAZO [Concomitant]
     Indication: CYSTITIS
     Route: 042
     Dates: start: 20130212, end: 20130403

REACTIONS (4)
  - Liver function test abnormal [Unknown]
  - Pain [Unknown]
  - Thrombocytopenia [Unknown]
  - Portal hypertension [Unknown]
